FAERS Safety Report 18749117 (Version 10)
Quarter: 2021Q3

REPORT INFORMATION
  Report Type: Report from Study
  Country: GB (occurrence: GB)
  Receive Date: 20210116
  Receipt Date: 20210826
  Transmission Date: 20211014
  Serious: Yes (Death, Other)
  Sender: FDA-Public Use
  Company Number: GB-CELLTRION INC.-2019GB026653

PATIENT

DRUGS (144)
  1. TRASTUZUMAB. [Suspect]
     Active Substance: TRASTUZUMAB
     Indication: BREAST CANCER
     Dosage: 525 MILLIGRAM, Q3WK, LOADING DOSE, KANJINTI WAS LAUNCHED ON 17/MAY/2018
     Route: 042
     Dates: start: 20170524, end: 20170524
  2. TRASTUZUMAB. [Suspect]
     Active Substance: TRASTUZUMAB
     Dosage: 378 MG, Q3WEEKS; 378 MILLIGRAM
     Route: 042
     Dates: start: 20180516, end: 20190327
  3. NAB?PACLITAXEL [Suspect]
     Active Substance: PACLITAXEL
     Dosage: 275 MG, EVERY 3 WEEKS
     Route: 042
     Dates: start: 20170715
  4. PERTUZUMAB. [Suspect]
     Active Substance: PERTUZUMAB
     Indication: BREAST CANCER
     Dosage: 840 MILLIGRAM, Q3WK; DOSE FORM: 120
     Route: 042
     Dates: start: 20170524, end: 20170524
  5. PERTUZUMAB. [Suspect]
     Active Substance: PERTUZUMAB
     Indication: HER2 POSITIVE BREAST CANCER
     Dosage: 840 MILLIGRAM, Q3WK (CUMULATIVE DOSE TO FIRST REACTION: 13020 MG); DOSE FORM: 120
     Route: 042
     Dates: start: 20170524, end: 20170524
  6. TRASTUZUMAB EMTANSINE [Suspect]
     Active Substance: ADO-TRASTUZUMAB EMTANSINE
     Indication: HER2 POSITIVE BREAST CANCER
     Dosage: 240 MILLIGRAM, Q3WK
     Route: 042
     Dates: start: 20190427, end: 20190606
  7. TRASTUZUMAB EMTANSINE [Suspect]
     Active Substance: ADO-TRASTUZUMAB EMTANSINE
     Dosage: 160 MILLIGRAM, Q3WK
     Route: 042
     Dates: start: 20190829, end: 20200326
  8. ABRAXANE [Suspect]
     Active Substance: PACLITAXEL
     Dosage: 275 MILLIGRAM, EVERY 3 WEEK; DOSE FORM: 120)
     Route: 042
     Dates: start: 20170715
  9. AZTREONAM. [Concomitant]
     Active Substance: AZTREONAM
     Dosage: DOSE FORM: 120
     Route: 042
     Dates: start: 20201028
  10. ERYTHROMYCIN. [Concomitant]
     Active Substance: ERYTHROMYCIN
     Dosage: UNK
     Route: 048
     Dates: start: 20190123, end: 20190202
  11. MEROPENEM. [Concomitant]
     Active Substance: MEROPENEM
     Indication: PYREXIA
     Dosage: DOSE FORM: 120
     Route: 042
     Dates: start: 20201130, end: 20201209
  12. SANDO K [Concomitant]
     Indication: PRODUCT USED FOR UNKNOWN INDICATION
     Dosage: UNK, BID
     Route: 048
     Dates: start: 20170525
  13. TINZAPARIN [Concomitant]
     Active Substance: TINZAPARIN
     Indication: THROMBOSIS
     Dosage: UNK, QD
     Route: 058
     Dates: start: 20170713, end: 20170723
  14. XELODA [Concomitant]
     Active Substance: CAPECITABINE
     Indication: PRODUCT USED FOR UNKNOWN INDICATION
     Dosage: 1300 MILLIGRAM
     Route: 048
     Dates: start: 20201020
  15. ZOLEDRONIC ACID [Concomitant]
     Active Substance: ZOLEDRONIC ACID
     Dosage: UNK
  16. VITAMIN K [Concomitant]
     Active Substance: PHYTONADIONE
     Indication: DUODENAL ULCER
     Dosage: 10 MG; DOSE FORM: 120
     Route: 042
     Dates: start: 20201112, end: 20201113
  17. SALIVA SUBSTITUTE [Concomitant]
     Active Substance: CARBOXYMETHYLCELLULOSE SODIUM\DEVICE\SORBINICATE
     Dosage: 4 DF, EVERY 1 DAY
     Route: 060
     Dates: start: 20170326
  18. TRASTUZUMAB. [Suspect]
     Active Substance: TRASTUZUMAB
     Dosage: 400 MILLIGRAM, Q3WK
     Route: 042
     Dates: start: 20170614, end: 20180425
  19. TRASTUZUMAB. [Suspect]
     Active Substance: TRASTUZUMAB
     Dosage: 400 MILLIGRAM, Q3WK
     Route: 042
     Dates: start: 20170614, end: 20180425
  20. NAB?PACLITAXEL [Suspect]
     Active Substance: PACLITAXEL
     Indication: BREAST CANCER
     Dosage: 450 MG, EVERY 3 WEEKS
     Route: 042
     Dates: start: 20170614, end: 20170614
  21. NAB?PACLITAXEL [Suspect]
     Active Substance: PACLITAXEL
     Dosage: 300 MG, EVERY 3 WEEKS
     Route: 042
     Dates: start: 20170816, end: 20170906
  22. PERTUZUMAB. [Suspect]
     Active Substance: PERTUZUMAB
     Dosage: 420 MILLIGRAM, Q3WK; DOSE FORM: 120
     Route: 042
     Dates: start: 20170614, end: 20190327
  23. ABRAXANE [Suspect]
     Active Substance: PACLITAXEL
     Indication: OFF LABEL USE
     Dosage: 300 MG EVERY 3 WEEKS; DOSE FORM: 124
     Route: 042
     Dates: start: 20170816, end: 20170906
  24. AMIKACIN. [Concomitant]
     Active Substance: AMIKACIN
     Indication: BILIARY SEPSIS
     Dosage: DOSE FORM: 120
     Route: 042
     Dates: start: 20200504, end: 20200504
  25. AMITRIPTYLINE HYDROCHLORIDE. [Concomitant]
     Active Substance: AMITRIPTYLINE HYDROCHLORIDE
     Indication: DEPRESSED MOOD
     Dosage: 5 MG, EVERY 1 DAY (CUMULATIVE DOSE TO FIRST REACTION: 210.0 MG)
     Route: 048
     Dates: start: 20190827
  26. AZTREONAM. [Concomitant]
     Active Substance: AZTREONAM
     Indication: BILIARY SEPSIS
     Dosage: DOSE FORM: 120
     Route: 042
     Dates: start: 20200925, end: 20200925
  27. CEFUROXIME. [Concomitant]
     Active Substance: CEFUROXIME
     Dosage: 250 MILLIGRAM, 0.5 DAY
     Route: 048
     Dates: start: 20201028
  28. CIPROFLOXACIN. [Concomitant]
     Active Substance: CIPROFLOXACIN
     Indication: PYREXIA
     Dosage: UNK, BID
     Route: 048
     Dates: start: 20200707, end: 202007
  29. CIPROFLOXACIN. [Concomitant]
     Active Substance: CIPROFLOXACIN
     Dosage: 250 MILLIGRAM, BID (CUMULATIVE DOSE TO FIRST REACTION: 188000.0 MG)
     Route: 048
     Dates: start: 20200726, end: 20200801
  30. CIPROFLOXACIN. [Concomitant]
     Active Substance: CIPROFLOXACIN
     Dosage: 500 MILLIGRAM, BID (CUMULATIVE DOSE TO FIRST REACTION: 396000.0 MG)
     Route: 048
     Dates: start: 20200815, end: 20200819
  31. TEICOPLANIN [Concomitant]
     Active Substance: TEICOPLANIN
     Dosage: UNK; DOSE FORM: 120
     Route: 042
     Dates: start: 20200925, end: 20200925
  32. TINZAPARIN [Concomitant]
     Active Substance: TINZAPARIN
     Dosage: UNK
  33. VANCOMYCIN [Concomitant]
     Active Substance: VANCOMYCIN
     Dosage: 125 MILLIGRAM, 0.25 DAY
     Route: 048
     Dates: start: 20201030, end: 20201104
  34. AMOXICILLIN. [Concomitant]
     Active Substance: AMOXICILLIN
     Indication: ABDOMINAL PAIN
     Dosage: UNK
  35. TRASTUZUMAB. [Suspect]
     Active Substance: TRASTUZUMAB
     Dosage: 378 MILLIGRAM, Q3WK, 293 (CUMULATIVE DOSE TO FIRST REACTION: 11417 MG)
     Route: 041
     Dates: start: 20180516, end: 20190327
  36. TRASTUZUMAB. [Suspect]
     Active Substance: TRASTUZUMAB
     Dosage: 160 MILLIGRAM; EVERY 3 WEEKS
     Route: 042
     Dates: start: 20190829
  37. NAB?PACLITAXEL [Suspect]
     Active Substance: PACLITAXEL
     Dosage: 375 MG, EVERY 3 WEEKS
     Route: 042
     Dates: start: 20170705, end: 20170726
  38. ABRAXANE [Suspect]
     Active Substance: PACLITAXEL
     Dosage: 300 MG EVERY 3 WEEKS; DOSE FORM: 124
     Route: 042
     Dates: start: 20170816, end: 20170906
  39. ABRAXANE [Suspect]
     Active Substance: PACLITAXEL
     Dosage: 275 MILLIGRAM, EVERY 3 WEEK; DOSE FORM: 120)
     Route: 042
     Dates: start: 20170705, end: 20170726
  40. ABRAXANE [Suspect]
     Active Substance: PACLITAXEL
     Dosage: 275 MILLIGRAM, EVERY 3 WEEK; DOSE FORM: 120)
     Route: 042
     Dates: start: 20170715
  41. CEFUROXIME. [Concomitant]
     Active Substance: CEFUROXIME
     Indication: BILIARY SEPSIS
     Dosage: 250 MILLIGRAM, 0.5 DAY
     Route: 048
     Dates: start: 20200925, end: 20201009
  42. CHLORPHENAMINE [Concomitant]
     Active Substance: CHLORPHENIRAMINE MALEATE
     Dosage: UNK
  43. ERTAPENEM. [Concomitant]
     Active Substance: ERTAPENEM SODIUM
     Indication: BILIARY SEPSIS
     Dosage: 1 GRAM; DOSE FORM: 120
     Route: 042
     Dates: start: 20200501, end: 20200502
  44. IKERVIS [Concomitant]
     Active Substance: CYCLOSPORINE
     Indication: BLEPHARITIS
     Dosage: UNK
     Route: 047
     Dates: start: 201708
  45. LOPERAMIDE [Concomitant]
     Active Substance: LOPERAMIDE
     Dosage: UNK
  46. MEROPENEM. [Concomitant]
     Active Substance: MEROPENEM
     Dosage: UNK
  47. METRONIDAZOLE. [Concomitant]
     Active Substance: METRONIDAZOLE
     Indication: DUODENAL ULCER
     Dosage: 400 MG, MONTHLY (CUMULATIVE DOSE TO FIRST REACTION: 6520.5557 MG)
     Route: 048
     Dates: start: 20201116, end: 202011
  48. TRASTUZUMAB. [Suspect]
     Active Substance: TRASTUZUMAB
     Indication: HER2 POSITIVE BREAST CANCER
     Dosage: 525 MILLIGRAM, Q3WK, LOADING DOSE, KANJINTI WAS LAUNCHED ON 17/MAY/2018
     Route: 042
     Dates: start: 20170524, end: 20170524
  49. TRASTUZUMAB. [Suspect]
     Active Substance: TRASTUZUMAB
     Dosage: 160 MILLIGRAM; EVERY 3 WEEKS
     Route: 042
     Dates: start: 20190829
  50. TRASTUZUMAB. [Suspect]
     Active Substance: TRASTUZUMAB
     Dosage: 200 MILLIGRAM; EVERY 3 WEEKS
     Route: 042
     Dates: start: 20190627, end: 20190718
  51. TRASTUZUMAB. [Suspect]
     Active Substance: TRASTUZUMAB
     Dosage: 200 MILLIGRAM; EVERY 3 WEEKS
     Route: 042
     Dates: start: 20190627, end: 20190718
  52. TRASTUZUMAB. [Suspect]
     Active Substance: TRASTUZUMAB
     Dosage: 240 MILLIGRAM; EVERY 3 WEEKS
     Route: 042
     Dates: start: 20190427, end: 20190606
  53. DOCETAXEL. [Suspect]
     Active Substance: DOCETAXEL
     Indication: BREAST CANCER
     Dosage: 130 MILLIGRAM, Q3WK (CUMULATIVE DOSE TO FIRST REACTION: 130 MG); DOSR FORM: 120
     Route: 042
     Dates: start: 20170525, end: 20170525
  54. TRASTUZUMAB EMTANSINE [Suspect]
     Active Substance: ADO-TRASTUZUMAB EMTANSINE
     Indication: BREAST CANCER
     Dosage: 240 MILLIGRAM, Q3WK
     Route: 042
     Dates: start: 20190427, end: 20190606
  55. PACLITAXEL. [Suspect]
     Active Substance: PACLITAXEL
     Dosage: 450 MILLIGRAM, Q3WK (CUMULATIVE DOSE TO FIRST REACTION: 300 MG)
     Route: 042
     Dates: start: 20170614, end: 20170614
  56. PACLITAXEL. [Suspect]
     Active Substance: PACLITAXEL
     Dosage: 275 MILLIGRAM, Q3WK (CUMULATIVE DOSE TO FIRST REACTION: 300 MG)
     Route: 042
     Dates: start: 20170715
  57. ABRAXANE [Suspect]
     Active Substance: PACLITAXEL
     Dosage: 450 MG EVERY 3 WEEK; DOSE FORM: 124)
     Route: 042
     Dates: start: 20170614, end: 20170614
  58. ABRAXANE [Suspect]
     Active Substance: PACLITAXEL
     Dosage: 450 MG EVERY 3 WEEK; DOSE FORM: 124)
     Route: 042
     Dates: start: 20170614, end: 20170614
  59. ABRAXANE [Suspect]
     Active Substance: PACLITAXEL
     Dosage: 275 MILLIGRAM, EVERY 3 WEEK; DOSE FORM: 120)
     Route: 042
     Dates: start: 20170715
  60. APIXABAN [Concomitant]
     Active Substance: APIXABAN
  61. CALCICHEW D3 FORTE [Concomitant]
     Active Substance: CALCIUM\CHOLECALCIFEROL
     Dosage: UNK
  62. CEFTRIAXONE. [Concomitant]
     Active Substance: CEFTRIAXONE
     Indication: BILIARY SEPSIS
     Dosage: 2 GRAM, QD (CUMULATIVE DOSE TO FIRST REACTION: 874 G); DOSE FORM: 120
     Route: 042
     Dates: start: 20200925, end: 20200927
  63. CEFUROXIME. [Concomitant]
     Active Substance: CEFUROXIME
     Dosage: 250 MILLIGRAM, BID, 0.5 DAY (CUMULATIVE DOSE TO FIRST REACTION: 218500.0 MG)
     Route: 048
     Dates: start: 20200925, end: 20201009
  64. CIPROFLOXACIN. [Concomitant]
     Active Substance: CIPROFLOXACIN
     Dosage: 500 MILLIGRAM,BID, 0.5 DAY (CUMULATIVE DOSE TO FIRST REACTION: 404000.0 MG)
     Route: 048
     Dates: start: 20200823, end: 20200828
  65. CIPROFLOXACIN. [Concomitant]
     Active Substance: CIPROFLOXACIN
     Dosage: 500 MILLIGRAM, BID(CUMULATIVE DOSE TO FIRST REACTION: 421000.0 MG)
     Route: 048
     Dates: start: 20200909, end: 20200916
  66. DOMPERIDONE [Concomitant]
     Active Substance: DOMPERIDONE
     Indication: PRODUCT USED FOR UNKNOWN INDICATION
     Dosage: 10 MILLIGRAM, 0.33 DAY
     Route: 048
     Dates: start: 20170523
  67. PARACETAMOL [Concomitant]
     Active Substance: ACETAMINOPHEN
     Dosage: UNK
  68. TINZAPARIN [Concomitant]
     Active Substance: TINZAPARIN
     Dosage: UNK
  69. VANCOMYCIN [Concomitant]
     Active Substance: VANCOMYCIN
     Indication: CLOSTRIDIUM DIFFICILE INFECTION
     Dosage: 125 MILLIGRAM, 0.25 DAY (CUMULATIVE DOSE TO FIRST REACTION: 236020.83 MG)
     Route: 048
     Dates: start: 20201030, end: 20201104
  70. AMOXICILLIN. [Concomitant]
     Active Substance: AMOXICILLIN
     Indication: PYREXIA
     Dosage: 625 MILLIGRAM, TID (CUMULATIVE DOSE TO FIRST REACTION: 963828.1 MG)
     Route: 048
     Dates: start: 20201211, end: 20201216
  71. TRASTUZUMAB. [Suspect]
     Active Substance: TRASTUZUMAB
     Dosage: 400 MILLIGRAM, Q3WK
     Route: 042
     Dates: start: 20180516, end: 20190327
  72. TRASTUZUMAB. [Suspect]
     Active Substance: TRASTUZUMAB
     Dosage: 200 MILLIGRAM; EVERY 3 WEEKS
     Route: 042
     Dates: start: 20190627, end: 20190718
  73. NAB?PACLITAXEL [Suspect]
     Active Substance: PACLITAXEL
     Dosage: 375 MG, EVERY 3 WEEKS
     Route: 042
     Dates: start: 20170705, end: 20170726
  74. NAB?PACLITAXEL [Suspect]
     Active Substance: PACLITAXEL
     Dosage: 375 MG, EVERY 3 WEEKS (CUMULATIVE DOSE TO FIRST REACTION: 1125 MG)
     Route: 042
     Dates: start: 20170705, end: 20170726
  75. NAB?PACLITAXEL [Suspect]
     Active Substance: PACLITAXEL
     Dosage: 300 MG, EVERY 3 WEEKS (CUMULATIVE DOSE TO FIRST REACTION: 1125 MG)
     Route: 042
     Dates: start: 20170816, end: 20170906
  76. TRASTUZUMAB EMTANSINE [Suspect]
     Active Substance: ADO-TRASTUZUMAB EMTANSINE
     Dosage: 240 MILLIGRAM, Q3WK (CUMULATIVE DOSE TO FIRST REACTION: 661.818 MG)
     Route: 042
     Dates: start: 20190427, end: 20190606
  77. TRASTUZUMAB EMTANSINE [Suspect]
     Active Substance: ADO-TRASTUZUMAB EMTANSINE
     Dosage: 200 MILLIGRAM, Q3WK (CUMULATIVE DOSE TO FIRST REACTION: 661.818 MG); DOSE FORM: 120
     Route: 042
     Dates: start: 20190627, end: 20190718
  78. TRASTUZUMAB EMTANSINE [Suspect]
     Active Substance: ADO-TRASTUZUMAB EMTANSINE
     Dosage: 200 MILLIGRAM, Q3WK; DOSE FORM: 120
     Route: 042
     Dates: start: 20190627, end: 20190718
  79. AMITRIPTYLINE HYDROCHLORIDE. [Concomitant]
     Active Substance: AMITRIPTYLINE HYDROCHLORIDE
     Dosage: UNK
  80. BLOOD [Concomitant]
     Active Substance: WHOLE BLOOD
     Indication: DUODENAL ULCER
     Dosage: 2 UNITS; DOSE FORM: 120
     Route: 042
     Dates: start: 20201112, end: 20201112
  81. CETIRIZINE [Concomitant]
     Active Substance: CETIRIZINE HYDROCHLORIDE
     Indication: PUSTULE
     Dosage: UNK UNK, QD
     Route: 048
     Dates: start: 20190313
  82. CETIRIZINE [Concomitant]
     Active Substance: CETIRIZINE HYDROCHLORIDE
     Dosage: UNK
  83. CHLORPHENAMINE [Concomitant]
     Active Substance: CHLORPHENIRAMINE MALEATE
     Indication: PRODUCT USED FOR UNKNOWN INDICATION
     Dosage: UNK, QID
     Route: 048
     Dates: start: 20170526
  84. CLOBETASOL PROPIONATE. [Concomitant]
     Active Substance: CLOBETASOL PROPIONATE
     Indication: PRODUCT USED FOR UNKNOWN INDICATION
     Dosage: UNK, BID, 0.5 DAY
     Route: 061
     Dates: start: 20170210
  85. LANSOPRAZOLE. [Concomitant]
     Active Substance: LANSOPRAZOLE
     Dosage: UNK
  86. TEICOPLANIN [Concomitant]
     Active Substance: TEICOPLANIN
     Dosage: UNK; DOSE FORM: 120
     Route: 042
     Dates: start: 20201028
  87. ZOLEDRONIC ACID [Concomitant]
     Active Substance: ZOLEDRONIC ACID
     Indication: PRODUCT USED FOR UNKNOWN INDICATION
     Dosage: 4 MILLIGRAM, Q4WK, ONCE IN EVERY 3 TO4 WEEKS. (CUMULATIVE DOSE TO FIRST REACTION: 111.71429 MG); DOS
     Route: 042
     Dates: start: 20170525
  88. TRASTUZUMAB. [Suspect]
     Active Substance: TRASTUZUMAB
     Dosage: 160 MILLIGRAM; EVERY 3 WEEKS
     Route: 042
     Dates: start: 20190829
  89. DOCETAXEL. [Suspect]
     Active Substance: DOCETAXEL
     Indication: HER2 POSITIVE BREAST CANCER
     Dosage: UNK
  90. NAB?PACLITAXEL [Suspect]
     Active Substance: PACLITAXEL
     Indication: HER2 POSITIVE BREAST CANCER
     Dosage: 450 MG, EVERY 3 WEEKS
     Route: 042
     Dates: start: 20170614, end: 20170614
  91. ABRAXANE [Suspect]
     Active Substance: PACLITAXEL
     Dosage: 275 MILLIGRAM, EVERY 3 WEEK; DOSE FORM: 120)
     Route: 042
     Dates: start: 20170705, end: 20170726
  92. CEFTRIAXONE. [Concomitant]
     Active Substance: CEFTRIAXONE
     Dosage: 250 MILLIGRAM, BID (CUMULATIVE DOSE TO FIRST REACTION: 220000 MG)
     Route: 048
     Dates: start: 20200928, end: 20201012
  93. DOMPERIDONE [Concomitant]
     Active Substance: DOMPERIDONE
     Dosage: UNK
  94. ERTAPENEM. [Concomitant]
     Active Substance: ERTAPENEM SODIUM
     Indication: CLOSTRIDIUM DIFFICILE INFECTION
     Dosage: 1 GRAM; DOSE FORM: 120
     Route: 042
     Dates: start: 20201104, end: 20201111
  95. FUSIDIC ACID [Concomitant]
     Active Substance: FUSIDIC ACID
     Indication: PRODUCT USED FOR UNKNOWN INDICATION
     Dosage: UNK
     Route: 065
     Dates: start: 201905
  96. FUSIDIC ACID [Concomitant]
     Active Substance: FUSIDIC ACID
     Dosage: UNK
  97. IKERVIS [Concomitant]
     Active Substance: CYCLOSPORINE
     Dosage: UNK
  98. LANSOPRAZOLE. [Concomitant]
     Active Substance: LANSOPRAZOLE
     Indication: GASTRITIS
     Dosage: UNK, QD
     Route: 048
     Dates: start: 20190730, end: 20190730
  99. NERATINIB [Concomitant]
     Active Substance: NERATINIB
     Indication: PRODUCT USED FOR UNKNOWN INDICATION
     Dosage: 240 MILLIGRAM, QD (CUMULATIVE DOSE TO FIRST REACTION: 103440.0 MG)
     Route: 048
     Dates: start: 20200919, end: 20201104
  100. OMEPRAZOLE. [Concomitant]
     Active Substance: OMEPRAZOLE
     Indication: DUODENAL ULCER
     Dosage: 40 MILLIGRAM, BID, 0.5 DAY (38883.332 MG)
     Route: 048
     Dates: start: 20201113, end: 20210205
  101. PARACETAMOL [Concomitant]
     Active Substance: ACETAMINOPHEN
     Indication: PRODUCT USED FOR UNKNOWN INDICATION
     Dosage: UNK UNK, PRN; AS PER REQUIRED.
     Route: 048
     Dates: start: 20170525
  102. VANCOMYCIN [Concomitant]
     Active Substance: VANCOMYCIN
     Dosage: 500 MG, QID, 0.25 DAY (CUMULATIVE DOSE TO FIRST REACTION: 954083.3 MG)
     Route: 048
     Dates: start: 20201104, end: 20201113
  103. TRASTUZUMAB. [Suspect]
     Active Substance: TRASTUZUMAB
     Dosage: 525 MILLIGRAM, Q3WK, LOADING DOSE, KANJINTI WAS LAUNCHED ON 17/MAY/2018 (CUMULATIVE DOSE TO FIRST RE
     Route: 042
     Dates: start: 20170524, end: 20170524
  104. TRASTUZUMAB. [Suspect]
     Active Substance: TRASTUZUMAB
     Dosage: 400 MILLIGRAM, Q3WK (CUMULATIVE DOSE TO FIRST REACTION: 11417 MG)
     Route: 042
     Dates: start: 20170614, end: 20180425
  105. TRASTUZUMAB. [Suspect]
     Active Substance: TRASTUZUMAB
     Dosage: 378 MG, Q3WEEKS; 378 MILLIGRAM
     Route: 042
     Dates: start: 20180516, end: 20190327
  106. TRASTUZUMAB. [Suspect]
     Active Substance: TRASTUZUMAB
     Dosage: 240 MILLIGRAM; EVERY 3 WEEKS
     Route: 042
     Dates: start: 20190427, end: 20190606
  107. NAB?PACLITAXEL [Suspect]
     Active Substance: PACLITAXEL
     Dosage: 450 MG, EVERY 3 WEEKS (CUMULATIVE DOSE TO FIRST REACTION: 1125 MG)
     Route: 042
     Dates: start: 20170614, end: 20170614
  108. NAB?PACLITAXEL [Suspect]
     Active Substance: PACLITAXEL
     Dosage: 300 MG, EVERY 3 WEEKS
     Route: 042
     Dates: start: 20170816, end: 20170906
  109. TRASTUZUMAB EMTANSINE [Suspect]
     Active Substance: ADO-TRASTUZUMAB EMTANSINE
     Dosage: 160 MILLIGRAM, Q3WK
     Route: 042
     Dates: start: 20190829, end: 20200326
  110. PACLITAXEL. [Suspect]
     Active Substance: PACLITAXEL
     Indication: BREAST CANCER
     Dosage: 450 MILLIGRAM, Q3WK
     Route: 042
     Dates: start: 20170614, end: 20170614
  111. ABRAXANE [Suspect]
     Active Substance: PACLITAXEL
     Indication: HER2 POSITIVE BREAST CANCER
     Dosage: 300 MG EVERY 3 WEEKS; DOSE FORM: 124
     Route: 042
     Dates: start: 20170816, end: 20170906
  112. ABRAXANE [Suspect]
     Active Substance: PACLITAXEL
     Dosage: 450 MG EVERY 3 WEEK; DOSE FORM: 124)
     Route: 042
     Dates: start: 20170614, end: 20170614
  113. ABRAXANE [Suspect]
     Active Substance: PACLITAXEL
     Dosage: 275 MILLIGRAM, EVERY 3 WEEK; DOSE FORM: 120)
     Route: 042
     Dates: start: 20170705, end: 20170726
  114. ABRAXANE [Suspect]
     Active Substance: PACLITAXEL
     Dosage: 275 MILLIGRAM, EVERY 3 WEEK; DOSE FORM: 120)
     Route: 042
     Dates: start: 20170715
  115. CALCICHEW D3 FORTE [Concomitant]
     Active Substance: CALCIUM\CHOLECALCIFEROL
     Indication: PRODUCT USED FOR UNKNOWN INDICATION
     Dosage: UNK, TID
     Route: 048
     Dates: start: 20170525
  116. CHLORHEXIDINE GLUCONATE. [Concomitant]
     Active Substance: CHLORHEXIDINE GLUCONATE
     Dosage: UNK
  117. FLUCLOXACILLIN [Concomitant]
     Active Substance: FLUCLOXACILLIN
     Dosage: UNK
  118. MEROPENEM. [Concomitant]
     Active Substance: MEROPENEM
     Indication: ABDOMINAL PAIN
     Dosage: 2 GRAM, TID, 0.33 DAY (CUMULATIVE DOSE TO FIRST REACTION: 1746.0 G)
     Route: 042
     Dates: start: 20200502, end: 20200515
  119. RANITIDINE. [Concomitant]
     Active Substance: RANITIDINE
  120. TRASTUZUMAB. [Suspect]
     Active Substance: TRASTUZUMAB
     Dosage: 378 MG, Q3WEEKS; 378 MILLIGRAM
     Route: 042
     Dates: start: 20180516, end: 20190327
  121. TRASTUZUMAB. [Suspect]
     Active Substance: TRASTUZUMAB
     Dosage: 240 MILLIGRAM; EVERY 3 WEEKS
     Route: 042
     Dates: start: 20190427, end: 20190606
  122. PERTUZUMAB. [Suspect]
     Active Substance: PERTUZUMAB
     Dosage: 420 MILLIGRAM, Q3WK (CUMULATIVE DOSE TO FIRST REACTION: 13020 MG); DOSE FORM: 120
     Route: 042
     Dates: start: 20170614, end: 20190327
  123. TRASTUZUMAB EMTANSINE [Suspect]
     Active Substance: ADO-TRASTUZUMAB EMTANSINE
     Dosage: 200 MILLIGRAM, Q3WK; DOSE FORM: 120
     Route: 042
     Dates: start: 20190627, end: 20190718
  124. TRASTUZUMAB EMTANSINE [Suspect]
     Active Substance: ADO-TRASTUZUMAB EMTANSINE
     Dosage: 160 MILLIGRAM, Q3WK (CUMULATIVE DOSE TO FIRST REACTION: 661.818 MG)
     Route: 042
     Dates: start: 20190829, end: 20200326
  125. PACLITAXEL. [Suspect]
     Active Substance: PACLITAXEL
     Indication: HER2 POSITIVE BREAST CANCER
     Dosage: 375 MILLIGRAM, Q3WK (CUMULATIVE DOSE TO FIRST REACTION: 300 MG)
     Route: 042
     Dates: start: 20170705, end: 20170726
  126. PACLITAXEL. [Suspect]
     Active Substance: PACLITAXEL
     Dosage: 300 MILLIGRAM, Q3WK (CUMULATIVE DOSE TO FIRST REACTION: 300 MG)
     Route: 042
     Dates: start: 20170816, end: 20170906
  127. ABRAXANE [Suspect]
     Active Substance: PACLITAXEL
     Dosage: 275 MILLIGRAM, EVERY 3 WEEK; DOSE FORM: 120)
     Route: 042
     Dates: start: 20170715
  128. ABRAXANE [Suspect]
     Active Substance: PACLITAXEL
     Dosage: 275 MILLIGRAM, EVERY 3 WEEK; DOSE FORM: 120)
     Route: 042
     Dates: start: 20170715
  129. CEFUROXIME. [Concomitant]
     Active Substance: CEFUROXIME
     Dosage: 250 MG, BID, 0.5 DAY (CUMULATIVE DOSE TO FIRST REACTION: 235020.83 MG)
     Route: 048
     Dates: start: 20201028
  130. CHLORHEXIDINE GLUCONATE. [Concomitant]
     Active Substance: CHLORHEXIDINE GLUCONATE
     Indication: PRODUCT USED FOR UNKNOWN INDICATION
     Dosage: UNK, QID
     Route: 061
     Dates: start: 20170525
  131. CIPROFLOXACIN. [Concomitant]
     Active Substance: CIPROFLOXACIN
     Indication: CHOLECYSTITIS ACUTE
     Dosage: 2, EVERY 1 DAY
     Route: 048
     Dates: start: 20200707, end: 202007
  132. CLOBETASOL PROPIONATE. [Concomitant]
     Active Substance: CLOBETASOL PROPIONATE
     Dosage: UNK
  133. DOMPERIDONE [Concomitant]
     Active Substance: DOMPERIDONE
     Dosage: 30 MG, EVERY DAY
     Route: 048
     Dates: start: 20170523
  134. FLUCLOXACILLIN [Concomitant]
     Active Substance: FLUCLOXACILLIN
     Indication: FOLLICULITIS
     Dosage: UNK
     Route: 048
     Dates: start: 20190122
  135. HALAVEN [Concomitant]
     Active Substance: ERIBULIN MESYLATE
     Indication: BREAST CANCER
     Dosage: 1.85 MILLIGRAM; DOSAGE FORM: 120
     Route: 042
     Dates: start: 20200611, end: 20200820
  136. LOPERAMIDE [Concomitant]
     Active Substance: LOPERAMIDE
     Indication: PRODUCT USED FOR UNKNOWN INDICATION
     Dosage: 1 DOSAGE FORM, PRN; 1 AS PER REQUIRED.
     Route: 048
     Dates: start: 20170613
  137. MEROPENEM. [Concomitant]
     Active Substance: MEROPENEM
     Indication: BILIARY SEPSIS
     Dosage: UNK
     Route: 042
     Dates: start: 20201130
  138. METRONIDAZOLE. [Concomitant]
     Active Substance: METRONIDAZOLE
     Indication: CHOLECYSTITIS ACUTE
     Dosage: UNK
     Route: 042
     Dates: start: 20200630, end: 20200709
  139. METRONIDAZOLE. [Concomitant]
     Active Substance: METRONIDAZOLE
     Indication: ABDOMINAL PAIN UPPER
     Dosage: UNK
     Route: 065
     Dates: start: 20200909, end: 20200914
  140. TEICOPLANIN [Concomitant]
     Active Substance: TEICOPLANIN
     Indication: BILIARY SEPSIS
     Dosage: UNK; DOSAGE FORM: 120
     Route: 042
     Dates: start: 20200502, end: 20200515
  141. TEICOPLANIN [Concomitant]
     Active Substance: TEICOPLANIN
     Indication: PYREXIA
     Dosage: UNK; DOSE FORM: 120
     Route: 042
     Dates: start: 20200724, end: 20200728
  142. TINZAPARIN [Concomitant]
     Active Substance: TINZAPARIN
     Dosage: UNK UNK, QD
     Route: 058
     Dates: start: 20190916
  143. TRANEXAMIC ACID. [Concomitant]
     Active Substance: TRANEXAMIC ACID
     Indication: DUODENAL ULCER
     Dosage: 1 GRAM
     Route: 048
     Dates: start: 20201112
  144. TRANEXAMIC ACID. [Concomitant]
     Active Substance: TRANEXAMIC ACID
     Dosage: UNK
     Route: 065

REACTIONS (5)
  - Off label use [Unknown]
  - HER2 positive breast cancer [Fatal]
  - Coagulopathy [Fatal]
  - Disease progression [Fatal]
  - Neuropathy peripheral [Fatal]

NARRATIVE: CASE EVENT DATE: 20170524
